FAERS Safety Report 6175605-0 (Version None)
Quarter: 2009Q2

REPORT INFORMATION
  Report Type: 
  Country: None (occurrence: None)
  Receive Date: 20090501
  Receipt Date: 20090421
  Transmission Date: 20091009
  Serious: Yes (Other)
  Sender: FDA-Public Use
  Company Number: US-WYE-H09046709

PATIENT
  Sex: Female

DRUGS (3)
  1. EFFEXOR XR [Suspect]
     Indication: GENERALISED ANXIETY DISORDER
     Route: 048
  2. ZOMIG [Concomitant]
     Indication: MIGRAINE
     Dosage: UNSPECIFIED DOSE,PRN
  3. ATIVAN [Concomitant]
     Indication: ANXIETY
     Dosage: UNKNOWN

REACTIONS (7)
  - ABDOMINAL DISTENSION [None]
  - CARCINOID TUMOUR OF THE STOMACH [None]
  - CHEST PAIN [None]
  - CONSTIPATION [None]
  - DYSPEPSIA [None]
  - WEIGHT DECREASED [None]
  - WEIGHT INCREASED [None]
